FAERS Safety Report 15346992 (Version 1)
Quarter: 2018Q3

REPORT INFORMATION
  Report Type: Spontaneous
  Country: DE (occurrence: DE)
  Receive Date: 20180904
  Receipt Date: 20180904
  Transmission Date: 20181010
  Serious: Yes (Other)
  Sender: FDA-Public Use
  Company Number: PHHY2018DE087817

PATIENT
  Age: 70 Year
  Sex: Female
  Weight: 55 kg

DRUGS (9)
  1. RIBOCICLIB. [Suspect]
     Active Substance: RIBOCICLIB
     Indication: BREAST CANCER
     Dosage: 125 MG, QD  (CYCLIC)
     Route: 048
     Dates: start: 20180430, end: 20180522
  2. LETROZOL [Concomitant]
     Active Substance: LETROZOLE
     Indication: BREAST CANCER
     Dosage: 2.5 MG, QD (1?0?0)
     Route: 048
     Dates: start: 20180430
  3. PANTOZOL [Concomitant]
     Active Substance: PANTOPRAZOLE SODIUM
     Indication: GASTROOESOPHAGEAL REFLUX DISEASE
     Dosage: 20 MG, QD (1?0?0)
     Route: 048
     Dates: start: 20180430
  4. RIBOCICLIB. [Suspect]
     Active Substance: RIBOCICLIB
     Dosage: 100 MG, QD (CYCLIC)
     Route: 048
     Dates: start: 20180613
  5. IBRANCE [Suspect]
     Active Substance: PALBOCICLIB
     Dosage: UNK
     Route: 065
  6. PANTOZOL [Concomitant]
     Active Substance: PANTOPRAZOLE SODIUM
     Indication: DIAPHRAGMATIC HERNIA
     Dosage: 20 MG, BID (PERMANENT)
     Route: 048
  7. IBRANCE [Suspect]
     Active Substance: PALBOCICLIB
     Dosage: 100 MG, QD (D1?21)
     Route: 065
     Dates: start: 20180430, end: 20180522
  8. IBRANCE [Suspect]
     Active Substance: PALBOCICLIB
     Indication: BREAST CANCER METASTATIC
     Dosage: UNK
     Route: 065
  9. SELEEN [Concomitant]
     Indication: SELENIUM DEFICIENCY
     Dosage: 300 UG, QD
     Route: 048
     Dates: start: 20180430

REACTIONS (2)
  - Neutropenia [Recovering/Resolving]
  - Leukopenia [Not Recovered/Not Resolved]

NARRATIVE: CASE EVENT DATE: 2018
